FAERS Safety Report 5089429-9 (Version None)
Quarter: 2006Q3

REPORT INFORMATION
  Report Type: 
  Country: None (occurrence: None)
  Receive Date: 20060825
  Receipt Date: 20060803
  Transmission Date: 20061208
  Serious: Yes (Life-Threatening, Other)
  Sender: FDA-Public Use
  Company Number: JP-MERCK-0608USA01550

PATIENT
  Age: 23 Year
  Sex: Female

DRUGS (3)
  1. PEPCID RPD [Suspect]
     Indication: STRESS ULCER
     Route: 048
     Dates: start: 20060420, end: 20060428
  2. PRIMAXIN [Concomitant]
     Indication: PNEUMONIA
     Route: 041
     Dates: start: 20060417, end: 20060421
  3. MINOCYCLINE HCL [Concomitant]
     Route: 041
     Dates: start: 20060413, end: 20060417

REACTIONS (1)
  - PNEUMONIA [None]
